FAERS Safety Report 6981048-X (Version None)
Quarter: 2010Q3

REPORT INFORMATION
  Report Type: 
  Country: None (occurrence: None)
  Receive Date: 20100914
  Receipt Date: 20100907
  Transmission Date: 20110219
  Serious: Yes (Other)
  Sender: FDA-Public Use
  Company Number: GB-TEVA-247889ISR

PATIENT
  Age: 82 Year
  Sex: Female

DRUGS (1)
  1. TRIMETHOPRIM [Suspect]
     Indication: URINARY TRACT INFECTION
     Dates: start: 20100825, end: 20100826

REACTIONS (2)
  - PERIPHERAL COLDNESS [None]
  - TREMOR [None]
